FAERS Safety Report 11702345 (Version 1)
Quarter: 2015Q4

REPORT INFORMATION
  Report Type: Spontaneous
  Country: US (occurrence: US)
  Receive Date: 20151105
  Receipt Date: 20151105
  Transmission Date: 20160304
  Serious: Yes (Other)
  Sender: FDA-Public Use
  Company Number: US-SHIRE-US201513487

PATIENT
  Age: 55 Year
  Sex: Male
  Weight: 72.56 kg

DRUGS (3)
  1. VYVANSE [Suspect]
     Active Substance: LISDEXAMFETAMINE DIMESYLATE
     Dosage: 30 MG, 1X/DAY:QD (IN THE AFTERNOON)
     Route: 048
     Dates: start: 2006
  2. VYVANSE [Suspect]
     Active Substance: LISDEXAMFETAMINE DIMESYLATE
     Indication: ATTENTION DEFICIT/HYPERACTIVITY DISORDER
     Dosage: 40 MG, 1X/DAY:QD (IN THE MORNING)
     Route: 048
     Dates: start: 2006
  3. PAXIL [Concomitant]
     Active Substance: PAROXETINE HYDROCHLORIDE
     Indication: FEAR OF CROWDED PLACES
     Dosage: UNK, UNKNOWN
     Route: 065
     Dates: start: 2005, end: 2012

REACTIONS (8)
  - Foot operation [Recovered/Resolved]
  - Knee operation [Recovered/Resolved]
  - Limb injury [Not Recovered/Not Resolved]
  - Product use issue [Recovered/Resolved]
  - Back disorder [Recovered/Resolved]
  - Intervertebral disc protrusion [Not Recovered/Not Resolved]
  - Pain [Not Recovered/Not Resolved]
  - Inappropriate schedule of drug administration [Not Recovered/Not Resolved]

NARRATIVE: CASE EVENT DATE: 2006
